FAERS Safety Report 23761427 (Version 1)
Quarter: 2024Q2

REPORT INFORMATION
  Report Type: Spontaneous
  Country: CN (occurrence: CN)
  Receive Date: 20240419
  Receipt Date: 20240419
  Transmission Date: 20240716
  Serious: Yes (Life-Threatening)
  Sender: FDA-Public Use
  Company Number: CN-BEIGENE-BGN-2024-005958

PATIENT

DRUGS (5)
  1. TISLELIZUMAB [Suspect]
     Active Substance: TISLELIZUMAB
     Indication: Pancreatic carcinoma
     Dosage: 200 MILLIGRAM
     Route: 041
     Dates: start: 20240319
  2. PACLITAXEL [Suspect]
     Active Substance: PACLITAXEL
     Indication: Pancreatic carcinoma
     Dosage: 160 MILLIGRAM
     Route: 041
     Dates: start: 20240319, end: 20240319
  3. PACLITAXEL [Suspect]
     Active Substance: PACLITAXEL
     Dosage: 160 MILLIGRAM
     Route: 041
     Dates: start: 20240326
  4. SODIUM CHLORIDE [Concomitant]
     Active Substance: SODIUM CHLORIDE
     Indication: Vehicle solution use
     Dosage: 32 MILLILITER (ALSO REPORTED AS 132 MILLILITER FOR PACLITAXEL FOR INJECTION (ALBUMIN BOUND), 100 MIL
     Route: 041
     Dates: start: 20240319
  5. SODIUM CHLORIDE [Concomitant]
     Active Substance: SODIUM CHLORIDE
     Dosage: 32 MILLILITER
     Route: 041
     Dates: start: 20240326

REACTIONS (1)
  - Myelosuppression [Recovering/Resolving]

NARRATIVE: CASE EVENT DATE: 20240328
